FAERS Safety Report 6547775-3 (Version None)
Quarter: 2010Q1

REPORT INFORMATION
  Report Type: 
  Country: None (occurrence: None)
  Receive Date: 20100124
  Receipt Date: 20091007
  Transmission Date: 20100710
  Serious: No
  Sender: FDA-Public Use
  Company Number: US-ALEXION-A200900822

PATIENT
  Weight: 135 kg

DRUGS (3)
  1. SOLIRIS [Suspect]
     Indication: PAROXYSMAL NOCTURNAL HAEMOGLOBINURIA
     Dosage: 600 MG, QW X4
     Dates: start: 20090911
  2. SOLIRIS [Suspect]
     Dosage: 900 MG, Q2W
     Dates: start: 20091007
  3. VITAMIN B-12 [Concomitant]
     Dosage: 1000 UG, QMO

REACTIONS (4)
  - BLOOD LACTATE DEHYDROGENASE INCREASED [None]
  - INFLUENZA [None]
  - PLATELET COUNT DECREASED [None]
  - WHITE BLOOD CELL COUNT DECREASED [None]
